FAERS Safety Report 25479173 (Version 1)
Quarter: 2025Q2

REPORT INFORMATION
  Report Type: Spontaneous
  Country: US (occurrence: US)
  Receive Date: 20250625
  Receipt Date: 20250625
  Transmission Date: 20250716
  Serious: No
  Sender: SANDOZ
  Company Number: US-SANDOZ-SDZ2025US042971

PATIENT
  Sex: Male

DRUGS (2)
  1. RECLAST [Suspect]
     Active Substance: ZOLEDRONIC ACID
     Indication: Arthritis
     Route: 065
     Dates: start: 20250529
  2. RECLAST [Suspect]
     Active Substance: ZOLEDRONIC ACID
     Indication: Osteoporosis

REACTIONS (3)
  - Joint swelling [Unknown]
  - Chest pain [Unknown]
  - Arthralgia [Unknown]

NARRATIVE: CASE EVENT DATE: 20250101
